FAERS Safety Report 16649000 (Version 1)
Quarter: 2019Q3

REPORT INFORMATION
  Report Type: Spontaneous
  Country: NL (occurrence: NL)
  Receive Date: 20190730
  Receipt Date: 20190730
  Transmission Date: 20191004
  Serious: Yes (Hospitalization, Other)
  Sender: FDA-Public Use
  Company Number: NL-ASTRAZENECA-2019SF04839

PATIENT
  Age: 56 Year
  Sex: Female

DRUGS (11)
  1. QUETIAPINE. [Suspect]
     Active Substance: QUETIAPINE
     Indication: SLEEP DISORDER
     Route: 048
     Dates: start: 201705
  2. ACETYLSALICYLIC ACID [Interacting]
     Active Substance: ASPIRIN
     Route: 065
     Dates: start: 201705
  3. FOSINOPRIL SODIUM. [Interacting]
     Active Substance: FOSINOPRIL SODIUM
     Route: 065
     Dates: start: 201705
  4. OXAZEPAM. [Interacting]
     Active Substance: OXAZEPAM
     Dosage: 80 TO 90 MG
     Route: 065
  5. OXAZEPAM. [Interacting]
     Active Substance: OXAZEPAM
     Route: 065
     Dates: start: 20170501
  6. SYNAPAUSE [Concomitant]
  7. LABETALOL [Concomitant]
     Active Substance: LABETALOL\LABETALOL HYDROCHLORIDE
     Indication: HYPERTENSION
  8. OXAZEPAM. [Interacting]
     Active Substance: OXAZEPAM
     Dosage: MORE THAN 10 YEARS
     Route: 065
  9. SIMVASTATIN. [Interacting]
     Active Substance: SIMVASTATIN
     Route: 065
     Dates: start: 201705
  10. BRILIQUE [Concomitant]
     Active Substance: TICAGRELOR
     Dates: start: 201705
  11. PANTOPRAZOLE [Concomitant]
     Active Substance: PANTOPRAZOLE
     Dates: start: 201705

REACTIONS (15)
  - Suicidal ideation [Unknown]
  - Alopecia [Not Recovered/Not Resolved]
  - Bradycardia [Unknown]
  - Depression [Recovering/Resolving]
  - Insomnia [Not Recovered/Not Resolved]
  - Blood pressure diastolic increased [Unknown]
  - Therapeutic response unexpected [Unknown]
  - Potentiating drug interaction [Unknown]
  - Contraindicated product administered [Unknown]
  - Myocardial infarction [Unknown]
  - Left ventricular dysfunction [Not Recovered/Not Resolved]
  - Hypertensive crisis [Unknown]
  - Weight increased [Not Recovered/Not Resolved]
  - Orthostatic hypotension [Unknown]
  - Sleep disorder [Recovering/Resolving]

NARRATIVE: CASE EVENT DATE: 20170514
